FAERS Safety Report 14578176 (Version 1)
Quarter: 2018Q1

REPORT INFORMATION
  Report Type: Spontaneous
  Country: IT (occurrence: IT)
  Receive Date: 20180227
  Receipt Date: 20180227
  Transmission Date: 20180509
  Serious: Yes (Death, Other)
  Sender: FDA-Public Use
  Company Number: IT-GILEAD-2018-0322767

PATIENT
  Age: 81 Year
  Sex: Male

DRUGS (4)
  1. TAMSULOSIN HYDROCHLORIDE. [Concomitant]
     Active Substance: TAMSULOSIN HYDROCHLORIDE
  2. VALPRESSION [Concomitant]
     Active Substance: VALSARTAN
  3. EPCLUSA [Suspect]
     Active Substance: SOFOSBUVIR\VELPATASVIR
     Indication: HEPATITIS C
     Dosage: 1 DF, UNK
     Route: 048
     Dates: start: 20170214, end: 20180204
  4. LUCEN                              /01479302/ [Concomitant]
     Active Substance: ESOMEPRAZOLE

REACTIONS (2)
  - Abdominal pain upper [Fatal]
  - Cardiac death [Fatal]

NARRATIVE: CASE EVENT DATE: 20180204
